FAERS Safety Report 9521263 (Version 1)
Quarter: 2013Q3

REPORT INFORMATION
  Report Type: Spontaneous
  Country: DE (occurrence: None)
  Receive Date: 20130821
  Receipt Date: 20130821
  Transmission Date: 20140515
  Serious: Yes (Death, Hospitalization)
  Sender: FDA-Public Use
  Company Number: 2013037093

PATIENT
  Age: 73 Year
  Sex: Male

DRUGS (12)
  1. PRIVIGEN [Suspect]
     Indication: CHRONIC LYMPHOCYTIC LEUKAEMIA
     Dosage: INFUSION RATE PER MINUTE  0.25ML/MIN MAX. 1.33 ML/MIN
     Dates: start: 20120522
  2. PANTOPRAZOL (PANTOPRAZOLE SODIUM) [Concomitant]
  3. ALLOPURINOL [Concomitant]
  4. NOVALGIN/00039501/ 9METHAMIZOLE SODIUM) [Suspect]
  5. TAMULSOIN (TAMULOSIN) [Concomitant]
  6. MOVICOL/01749801 (MOVICOL) [Concomitant]
  7. DUROGESIC (FENTANYL) [Concomitant]
  8. BENDAMUSTINE (BENDAMUSTINE) (BENDAMUSTINE) [Concomitant]
  9. PREDNISOLONE (PREDNISOLONE) [Concomitant]
  10. FENISTIL (DIMETINDENE MALEATE) [Concomitant]
  11. VALSARTAN (VALSARTAN) [Concomitant]
  12. RED BLOOD CELLS, CONCENTRATED (RED BLOOD CELLS, CONCENTRATED) [Concomitant]

REACTIONS (2)
  - Chronic lymphocytic leukaemia [None]
  - Pleural effusion [None]
